FAERS Safety Report 23762039 (Version 1)
Quarter: 2024Q2

REPORT INFORMATION
  Report Type: Spontaneous
  Country: US (occurrence: None)
  Receive Date: 20240419
  Receipt Date: 20240419
  Transmission Date: 20240716
  Serious: Yes (Hospitalization)
  Sender: FDA-Public Use
  Company Number: None

PATIENT
  Sex: Female
  Weight: 58.6 kg

DRUGS (1)
  1. PEMBROLIZUMAB [Suspect]
     Active Substance: PEMBROLIZUMAB
     Dates: start: 20231219

REACTIONS (5)
  - Gastrointestinal viral infection [None]
  - Food poisoning [None]
  - Hypovolaemia [None]
  - Shock [None]
  - Colitis [None]

NARRATIVE: CASE EVENT DATE: 20240410
